FAERS Safety Report 20066130 (Version 2)
Quarter: 2021Q4

REPORT INFORMATION
  Report Type: Spontaneous
  Country: US (occurrence: US)
  Receive Date: 20211114
  Receipt Date: 20211122
  Transmission Date: 20220303
  Serious: No
  Sender: FDA-Public Use
  Company Number: US-Blueprint Medicines Corporation-SP-US-2021-002142

PATIENT
  Age: 73 Year
  Sex: Male
  Weight: 90.800 kg

DRUGS (18)
  1. AYVAKIT [Suspect]
     Active Substance: AVAPRITINIB
     Indication: Systemic mastocytosis
     Route: 048
     Dates: start: 20211026
  2. NORVASC [Concomitant]
     Active Substance: AMLODIPINE BESYLATE
     Indication: Product used for unknown indication
     Route: 048
  3. CVS B12 gummies [Concomitant]
     Indication: Product used for unknown indication
     Dosage: CHEW 1,000 MCG BY MOUTH
     Route: 048
  4. PEPCID [Concomitant]
     Active Substance: FAMOTIDINE
     Indication: Product used for unknown indication
     Route: 048
  5. Allegra PO [Concomitant]
     Indication: Product used for unknown indication
     Route: 048
  6. AVAPRO [Concomitant]
     Active Substance: IRBESARTAN
     Indication: Product used for unknown indication
     Route: 048
  7. Probiotic digestive support PO [Concomitant]
     Indication: Product used for unknown indication
     Dosage: 2 TABLETS
     Route: 048
  8. ATIVAN [Concomitant]
     Active Substance: LORAZEPAM
     Indication: Anxiety
     Dosage: TAKE ONE OR TWO TABLETS EVERY SIX HOURS AS NEEDED
     Route: 048
  9. SINGULAIR [Concomitant]
     Active Substance: MONTELUKAST SODIUM
     Indication: Product used for unknown indication
     Route: 048
  10. Multivitamin gummies mens [Concomitant]
     Indication: Product used for unknown indication
     Dosage: CHEW 1 DOSE BY MOUTH DAILY
     Route: 048
  11. Roxicodone/oxy IR [Concomitant]
     Indication: Back pain
     Route: 048
  12. PROTONIX [Concomitant]
     Active Substance: PANTOPRAZOLE SODIUM
     Indication: Product used for unknown indication
     Route: 048
  13. SENOKOT [Concomitant]
     Active Substance: SENNOSIDES
     Indication: Product used for unknown indication
     Dosage: TAKE 2 TABLETS BY MOUTH DAILY
     Route: 048
  14. BETAMETHASONE DIPROPIONATE [Concomitant]
     Active Substance: BETAMETHASONE DIPROPIONATE
     Indication: Product used for unknown indication
     Route: 065
  15. TUMS [Concomitant]
     Active Substance: CALCIUM CARBONATE
     Indication: Product used for unknown indication
     Dosage: 500 MG (200 MG), CHEW 2 TABLETS BY MOUTH
     Route: 048
  16. VIactiv calcium plus D [Concomitant]
     Indication: Product used for unknown indication
     Dosage: 650-12.5-40 MG-MCG-MCG, 2 TABLETS
     Route: 048
  17. Covid-19 MRNA vaccine [Concomitant]
     Route: 030
  18. ZOFRAN [Concomitant]
     Active Substance: ONDANSETRON HYDROCHLORIDE
     Indication: Nausea
     Route: 048

REACTIONS (2)
  - Eye swelling [Not Recovered/Not Resolved]
  - Periorbital swelling [Unknown]

NARRATIVE: CASE EVENT DATE: 20211109
